FAERS Safety Report 9551431 (Version 1)
Quarter: 2013Q2

REPORT INFORMATION
  Report Type: Spontaneous
  Country: US (occurrence: None)
  Receive Date: 20130627
  Receipt Date: 20130627
  Transmission Date: 20140414
  Serious: No
  Sender: FDA-Public Use
  Company Number: 1000045230

PATIENT
  Age: 80 Year
  Sex: Male

DRUGS (7)
  1. LINZESS (LINACLOTIDE) (290 MICROGRAM, CAPSULES) [Suspect]
     Indication: CONSTIPATION
     Dosage: 1 IN 1 D
     Route: 048
     Dates: start: 20130419, end: 20130424
  2. LINZESS (LINACLOTIDE) (290 MICROGRAM, CAPSULES) [Suspect]
     Indication: CONSTIPATION
     Dosage: 1 IN 1D
     Route: 048
     Dates: start: 20130428, end: 20130502
  3. CLOPIDOGREL (CLOPIDOGREL) (CLOPIDOGREL) [Concomitant]
  4. ISOSORBIDE (ISOSORBIDE) (ISOSORBIDE) [Concomitant]
  5. COREG (CARVEDILOL) (CARVEDILOL) [Concomitant]
  6. COLACE [Concomitant]
  7. MIRALAX (POLYETHYLENE GLYCOL) (POLYETHYLENE GLYCOL) [Concomitant]

REACTIONS (2)
  - Abdominal pain [None]
  - Rash [None]
